FAERS Safety Report 14647292 (Version 1)
Quarter: 2018Q1

REPORT INFORMATION
  Report Type: Other
  Country: DE (occurrence: DE)
  Receive Date: 20180316
  Receipt Date: 20180316
  Transmission Date: 20180509
  Serious: Yes (Hospitalization, Other)
  Sender: FDA-Public Use
  Company Number: DE-MACLEODS PHARMACEUTICALS US LTD-MAC2018011220

PATIENT

DRUGS (2)
  1. TICAGRELOR. [Suspect]
     Active Substance: TICAGRELOR
     Indication: CEREBRAL INFARCTION
     Dosage: 120 MG, QD, EVERY DAY, BEGINNING END 06.2017
     Route: 048
     Dates: start: 2017, end: 20171005
  2. CLOPIDOGREL [Suspect]
     Active Substance: CLOPIDOGREL BISULFATE
     Indication: CEREBRAL INFARCTION
     Dosage: 75 MG, QD, EVERY DAY, INDICATION: Z.N.MEDIATEILINFARKT
     Route: 048
     Dates: start: 201707

REACTIONS (3)
  - Drug-induced liver injury [Recovering/Resolving]
  - Hepatitis B virus test positive [Recovering/Resolving]
  - Hepatitis cholestatic [Recovering/Resolving]

NARRATIVE: CASE EVENT DATE: 20171005
